FAERS Safety Report 15909029 (Version 3)
Quarter: 2019Q1

REPORT INFORMATION
  Report Type: Report from Study
  Country: US (occurrence: US)
  Receive Date: 20190204
  Receipt Date: 20190308
  Transmission Date: 20190417
  Serious: Yes (Hospitalization)
  Sender: FDA-Public Use
  Company Number: US-ACTELION-A-NJ2018-174451

PATIENT
  Age: 75 Year
  Sex: Male

DRUGS (1)
  1. OPSUMIT [Suspect]
     Active Substance: MACITENTAN
     Indication: PULMONARY ARTERIAL HYPERTENSION
     Dosage: 10 MG, QD
     Route: 048
     Dates: start: 20160915

REACTIONS (12)
  - Diarrhoea [Not Recovered/Not Resolved]
  - Abdominal distension [Not Recovered/Not Resolved]
  - Weight decreased [Not Recovered/Not Resolved]
  - Fluid retention [Recovering/Resolving]
  - Product dose omission [Unknown]
  - Incorrect dose administered [Recovered/Resolved]
  - Delirium [Recovering/Resolving]
  - Gait disturbance [Recovering/Resolving]
  - Pneumonia [Unknown]
  - Dyspnoea [Not Recovered/Not Resolved]
  - Therapy non-responder [Unknown]
  - Suffocation feeling [Not Recovered/Not Resolved]

NARRATIVE: CASE EVENT DATE: 20190222
